FAERS Safety Report 21209975 (Version 1)
Quarter: 2022Q3

REPORT INFORMATION
  Report Type: Spontaneous
  Country: US (occurrence: US)
  Receive Date: 20220813
  Receipt Date: 20220813
  Transmission Date: 20221026
  Serious: No
  Sender: FDA-Public Use
  Company Number: US-SA-SAC20220808000537

PATIENT
  Sex: Female

DRUGS (2)
  1. DUPIXENT [Suspect]
     Active Substance: DUPILUMAB
     Indication: Asthma
     Dosage: 300 MG, QOW
     Route: 058
     Dates: start: 20200124
  2. METOPROLOL [Concomitant]
     Active Substance: METOPROLOL
     Dosage: 1MG/ML

REACTIONS (2)
  - Asthma [Not Recovered/Not Resolved]
  - Quality of life decreased [Unknown]
